FAERS Safety Report 13673763 (Version 1)
Quarter: 2017Q2

REPORT INFORMATION
  Report Type: Spontaneous
  Country: US (occurrence: US)
  Receive Date: 20170620
  Receipt Date: 20170620
  Transmission Date: 20170830
  Serious: Yes (Life-Threatening, Hospitalization, Disabling)
  Sender: FDA-Public Use
  Company Number: None

PATIENT
  Age: 47 Year
  Sex: Female
  Weight: 56.25 kg

DRUGS (1)
  1. KLONOPIN [Suspect]
     Active Substance: CLONAZEPAM
     Indication: PANIC ATTACK
     Dosage: ?          QUANTITY:1 TABLET(S);?EVERY 6 HOURS ORAL
     Route: 048
     Dates: start: 20070601, end: 20120228

REACTIONS (11)
  - Myalgia [None]
  - Withdrawal syndrome [None]
  - Gastric disorder [None]
  - Anxiety [None]
  - Sleep disorder [None]
  - Depression [None]
  - Feeling abnormal [None]
  - Confusional state [None]
  - Neuralgia [None]
  - Exercise tolerance decreased [None]
  - Arthralgia [None]

NARRATIVE: CASE EVENT DATE: 20120228
